FAERS Safety Report 5523939-2 (Version None)
Quarter: 2007Q4

REPORT INFORMATION
  Report Type: 
  Country: None (occurrence: None)
  Receive Date: 20071121
  Receipt Date: 20071113
  Transmission Date: 20080405
  Serious: Yes (Hospitalization, Other)
  Sender: FDA-Public Use
  Company Number: FR-ABBOTT-07P-056-0423312-00

PATIENT
  Age: 48 Year
  Sex: Male
  Weight: 130 kg

DRUGS (6)
  1. KALETRA [Suspect]
     Indication: HIV INFECTION
     Route: 048
     Dates: start: 20010901, end: 20011001
  2. KALETRA [Suspect]
     Route: 048
     Dates: start: 20011001, end: 20020301
  3. KALETRA [Suspect]
     Route: 048
     Dates: start: 20020301
  4. EFAVIRENZ [Interacting]
     Indication: HIV INFECTION
     Route: 048
     Dates: start: 20010901
  5. FLUINDIONE [Interacting]
     Indication: THROMBOPHLEBITIS
     Route: 048
     Dates: start: 20010901, end: 20011001
  6. FLUINDIONE [Interacting]
     Route: 048
     Dates: start: 20020301

REACTIONS (6)
  - DEEP VEIN THROMBOSIS [None]
  - DRUG INTERACTION [None]
  - OVERDOSE [None]
  - PELVIC VENOUS THROMBOSIS [None]
  - PULMONARY EMBOLISM [None]
  - TACHYPNOEA [None]
